FAERS Safety Report 5916497-1 (Version None)
Quarter: 2008Q4

REPORT INFORMATION
  Report Type: 
  Country: None (occurrence: None)
  Receive Date: 20081013
  Receipt Date: 20081007
  Transmission Date: 20090506
  Serious: Yes (Other)
  Sender: FDA-Public Use
  Company Number: A0750821A

PATIENT
  Age: 22 Year
  Sex: Female

DRUGS (2)
  1. TREXIMET [Suspect]
     Dosage: 1TAB SINGLE DOSE
     Route: 048
     Dates: start: 20081003, end: 20081004
  2. CYMBALTA [Suspect]
     Indication: DRUG USE FOR UNKNOWN INDICATION
     Route: 065

REACTIONS (2)
  - DRUG INTERACTION [None]
  - SUICIDE ATTEMPT [None]
